FAERS Safety Report 8327514-6 (Version None)
Quarter: 2012Q2

REPORT INFORMATION
  Report Type: 
  Country: None (occurrence: None)
  Receive Date: 20120502
  Receipt Date: 20120423
  Transmission Date: 20120825
  Serious: Yes (Hospitalization, Other)
  Sender: FDA-Public Use
  Company Number: US-BAYER-2011-096774

PATIENT
  Age: 52 Year
  Sex: Female
  Weight: 84.354 kg

DRUGS (5)
  1. DROSPIRENONE AND ETHINYL ESTRADIOL [Suspect]
     Indication: CONTRACEPTION
  2. YASMIN [Suspect]
     Indication: CONTRACEPTION
     Dosage: UNK
     Dates: start: 20080101, end: 20090101
  3. ATENOLOL [Concomitant]
     Indication: MITRAL VALVE PROLAPSE
     Dosage: UNK
     Dates: start: 19900101
  4. NEXIUM [Concomitant]
     Dosage: 40 MG, UNK
     Dates: start: 20090618
  5. CLARINEX [Concomitant]
     Dosage: 5 MG, UNK
     Dates: start: 20090618

REACTIONS (7)
  - PAIN [None]
  - ANXIETY [None]
  - CHOLECYSTITIS CHRONIC [None]
  - DYSPEPSIA [None]
  - GENERAL PHYSICAL HEALTH DETERIORATION [None]
  - EMOTIONAL DISTRESS [None]
  - GALLBLADDER DISORDER [None]
